FAERS Safety Report 24832380 (Version 1)
Quarter: 2025Q1

REPORT INFORMATION
  Report Type: Spontaneous
  Country: AU (occurrence: AU)
  Receive Date: 20250110
  Receipt Date: 20250110
  Transmission Date: 20250409
  Serious: Yes (Life-Threatening, Other)
  Sender: PFIZER
  Company Number: AU-PFIZER INC-202500003894

PATIENT
  Age: 3 Month
  Sex: Male

DRUGS (10)
  1. MIDAZOLAM HYDROCHLORIDE [Suspect]
     Active Substance: MIDAZOLAM HYDROCHLORIDE
     Indication: Seizure
  2. PHENYTOIN [Suspect]
     Active Substance: PHENYTOIN
     Indication: Seizure
  3. PHENOBARBITAL [Suspect]
     Active Substance: PHENOBARBITAL
     Indication: Seizure
  4. PYRIDOXINE [Suspect]
     Active Substance: PYRIDOXINE
     Indication: Seizure
  5. VIGABATRIN [Suspect]
     Active Substance: VIGABATRIN
     Indication: Seizure
  6. LAMOTRIGINE [Suspect]
     Active Substance: LAMOTRIGINE
     Indication: Seizure
  7. PREDNISOLONE [Suspect]
     Active Substance: PREDNISOLONE
     Indication: Seizure
  8. CORTICOTROPIN [Suspect]
     Active Substance: CORTICOTROPIN
     Indication: Seizure
  9. CARBAMAZEPINE [Suspect]
     Active Substance: CARBAMAZEPINE
     Indication: Seizure
  10. NITRAZEPAM [Suspect]
     Active Substance: NITRAZEPAM
     Indication: Seizure

REACTIONS (2)
  - Drug ineffective [Unknown]
  - Off label use [Unknown]
